FAERS Safety Report 5707335-0 (Version None)
Quarter: 2008Q2

REPORT INFORMATION
  Report Type: 
  Country: None (occurrence: None)
  Receive Date: 20080416
  Receipt Date: 20080409
  Transmission Date: 20081010
  Serious: Yes (Hospitalization, Other)
  Sender: FDA-Public Use
  Company Number: CA-ROCHE-554661

PATIENT
  Sex: Female
  Weight: 61.4 kg

DRUGS (12)
  1. TAMIFLU [Suspect]
     Route: 048
     Dates: start: 20070223, end: 20070227
  2. PLAVIX [Suspect]
     Indication: TRANSIENT ISCHAEMIC ATTACK
     Dosage: EACH MORNING.
     Route: 048
  3. ATENOLOL [Concomitant]
     Route: 048
  4. GALANTAMINE HYDROBROMIDE [Concomitant]
     Route: 048
  5. GABAPENTIN [Concomitant]
     Route: 048
  6. FERROUS FUMARATE [Concomitant]
     Route: 048
  7. ACETAMINOPHEN AND CODEINE PHOSPHATE [Concomitant]
     Dosage: 2 TIMES MORNING, 1 TIMES AT NOON AND 2 TIMES HS.
     Route: 048
  8. ACETAMINOPHEN AND CODEINE PHOSPHATE [Concomitant]
     Dosage: 2 TIMES MORNING, 1 TIMES AT NOON AND 2 TIMES HS.
     Route: 048
  9. PILOCARPINE [Concomitant]
     Dosage: DRUG: PILOCARPINE/ISOPTOCARPINE. ROUTE: OCCULAR. TDD: ONE DROP QID RIGHT EYE.
     Route: 050
  10. TIMOLOL MALEATE [Concomitant]
     Dosage: ROUTE: OCCULAR. 1 DROP EACH EYE BID.
     Route: 050
  11. OLANZAPINE [Concomitant]
     Dosage: 2.5 MG IN THE MORNING AND 5 MG IN THE EVENING.
     Route: 048
  12. 1 CONCOMITANT DRUG [Concomitant]

REACTIONS (7)
  - CREATININE RENAL CLEARANCE DECREASED [None]
  - DEHYDRATION [None]
  - LETHARGY [None]
  - PNEUMONIA [None]
  - RASH [None]
  - RESPIRATORY TRACT CONGESTION [None]
  - SEPSIS [None]
